FAERS Safety Report 6342811-1 (Version None)
Quarter: 2009Q3

REPORT INFORMATION
  Report Type: 
  Country: None (occurrence: None)
  Receive Date: 20090908
  Receipt Date: 20090827
  Transmission Date: 20100115
  Serious: Yes (Hospitalization, Disabling, Other)
  Sender: FDA-Public Use
  Company Number: US-ROCHE-548694

PATIENT
  Sex: Male
  Weight: 56.7 kg

DRUGS (2)
  1. ACCUTANE [Suspect]
     Indication: ACNE
     Dosage: 40 MG CAPSULE DISPENSED ON 25 OCTOBER 2004
     Route: 048
     Dates: start: 20041025, end: 20041122
  2. AMNESTEEM [Suspect]
     Indication: ACNE
     Dosage: 40 MG CAPSULES DISPENSED 24 MAY 2004, 20 MG CAPSULES DISPENSED 16 JUNE 2004 + 21 SEPTEMBER 2004.
     Route: 048
     Dates: start: 20040524, end: 20041021

REACTIONS (10)
  - ANXIETY [None]
  - COLITIS [None]
  - COLONIC STENOSIS [None]
  - CROHN'S DISEASE [None]
  - DEPRESSION [None]
  - ILEITIS [None]
  - ILL-DEFINED DISORDER [None]
  - INFLAMMATORY BOWEL DISEASE [None]
  - INTESTINAL OBSTRUCTION [None]
  - IRON DEFICIENCY ANAEMIA [None]
